FAERS Safety Report 4475937-8 (Version None)
Quarter: 2004Q3

REPORT INFORMATION
  Report Type: 
  Country: None (occurrence: None)
  Receive Date: 20040923
  Receipt Date: 20040809
  Transmission Date: 20050211
  Serious: No
  Sender: FDA-Public Use
  Company Number: USA040772338

PATIENT
  Age: 77 Year
  Sex: Female
  Weight: 68 kg

DRUGS (22)
  1. FORTEO [Suspect]
     Indication: OSTEOPOROSIS
     Dosage: 20 UG DAY
     Dates: start: 20040617
  2. AVANDAMET [Concomitant]
  3. PREVACID [Concomitant]
  4. PLAVIX [Concomitant]
  5. METOPROLOL [Concomitant]
  6. NORVASC [Concomitant]
  7. NITRO (GLYCERYL TRINITRATE) [Concomitant]
  8. TRICOR [Concomitant]
  9. PAXIL [Concomitant]
  10. MONOPRIL [Concomitant]
  11. ASPIRIN [Concomitant]
  12. CALCIUM [Concomitant]
  13. FERROUS SULFATE TAB [Concomitant]
  14. DURAGESIC [Concomitant]
  15. UNIPHYL [Concomitant]
  16. ESTROGEN NOS [Concomitant]
  17. EX-LAX STOOL SOFTENER (DOCUSATE SODIUM) [Concomitant]
  18. STOOL SOFTENER (DOCUSATE SODIUM) [Concomitant]
  19. ALFALFA [Concomitant]
  20. VITAMIN C [Concomitant]
  21. VITAMIN E (HERBAL OIL NOS) [Concomitant]
  22. MULTI-VITAMIN [Concomitant]

REACTIONS (5)
  - ARTHRALGIA [None]
  - CONSTIPATION [None]
  - JAW DISORDER [None]
  - MUSCLE CRAMP [None]
  - NAUSEA [None]
